FAERS Safety Report 4363463-6 (Version None)
Quarter: 2004Q2

REPORT INFORMATION
  Report Type: 
  Country: None (occurrence: None)
  Receive Date: 20040524
  Receipt Date: 20040402
  Transmission Date: 20050107
  Serious: Yes (Other)
  Sender: FDA-Public Use
  Company Number: BE-BRISTOL-MYERS SQUIBB COMPANY-12549960

PATIENT
  Age: 36 Year
  Sex: Female
  Weight: 59 kg

DRUGS (4)
  1. ATAZANAVIR [Suspect]
     Indication: HIV INFECTION
     Route: 048
     Dates: start: 20030911
  2. DIDANOSINE [Concomitant]
     Indication: HIV INFECTION
     Dates: start: 20030911
  3. TENOFOVIR [Concomitant]
     Indication: HIV INFECTION
     Dates: start: 20030911
  4. RITONAVIR [Concomitant]
     Indication: HIV INFECTION
     Dates: start: 20030911

REACTIONS (2)
  - ABORTION SPONTANEOUS [None]
  - PREGNANCY [None]
